FAERS Safety Report 8971025 (Version 1)
Quarter: 2012Q4

REPORT INFORMATION
  Report Type: 
  Country: US (occurrence: US)
  Receive Date: 20121218
  Receipt Date: 20121218
  Transmission Date: 20130627
  Serious: Yes (Other)
  Sender: FDA-Public Use
  Company Number: US-BRISTOL-MYERS SQUIBB COMPANY-16471708

PATIENT
  Age: 58 Year
  Sex: Female
  Weight: 72 kg

DRUGS (15)
  1. ABILIFY [Suspect]
     Dates: start: 20111102
  2. ADDERALL [Suspect]
  3. GABAPENTIN [Concomitant]
  4. HYDROXYZINE [Concomitant]
     Dosage: Caps
  5. TRAZODONE HCL [Concomitant]
     Indication: SLEEP DISORDER
     Dosage: 2 pills
  6. BUPROPION SR [Concomitant]
     Dosage: BD to QD
  7. SIMVASTATIN [Concomitant]
  8. METRONIDAZOLE [Concomitant]
     Dosage: Gel 75%
  9. CITALOPRAM [Concomitant]
     Dosage: QPM: Every night
  10. AMPHETAMINE SULFATE [Concomitant]
  11. CHLORHEX [Concomitant]
     Dosage: 1Df: Glu Solution 0.12%
  12. PHISOHEX [Concomitant]
     Indication: ALOPECIA
  13. FUROSEMIDE [Concomitant]
     Indication: SWELLING
  14. FUROSEMIDE [Concomitant]
     Indication: OEDEMA
  15. LEVOTHYROXINE [Concomitant]

REACTIONS (4)
  - Somatic delusion [Unknown]
  - Neuropathy peripheral [Unknown]
  - Fatigue [Not Recovered/Not Resolved]
  - Somnolence [Unknown]
